FAERS Safety Report 20820798 (Version 1)
Quarter: 2022Q2

REPORT INFORMATION
  Report Type: Spontaneous
  Country: US (occurrence: None)
  Receive Date: 20220512
  Receipt Date: 20220512
  Transmission Date: 20220721
  Serious: Yes (Other)
  Sender: FDA-Public Use
  Company Number: None

PATIENT
  Age: 37 Year
  Sex: Male
  Weight: 77.85 kg

DRUGS (11)
  1. PAXLOVID [Suspect]
     Active Substance: NIRMATRELVIR\RITONAVIR
     Indication: COVID-19
     Dosage: FREQUENCY : TWICE A DAY;?
     Route: 048
     Dates: start: 20220502, end: 20220506
  2. LAMICTAL [Concomitant]
     Active Substance: LAMOTRIGINE
  3. CETIRIZINE [Concomitant]
     Active Substance: CETIRIZINE HYDROCHLORIDE
  4. FLONASE [Concomitant]
     Active Substance: FLUTICASONE PROPIONATE
  5. LEVOTHYROXINE [Concomitant]
     Active Substance: LEVOTHYROXINE
  6. Atorvastatin (did not take Atorvastatin during Paxlovid course) [Concomitant]
  7. Bromphed [Concomitant]
  8. VITAMIN D NOS [Concomitant]
     Active Substance: VITAMIN D NOS
  9. ZINC [Concomitant]
     Active Substance: ZINC
  10. ACETAMINOPHEN [Concomitant]
     Active Substance: ACETAMINOPHEN
  11. IBUPROFEN [Concomitant]
     Active Substance: IBUPROFEN

REACTIONS (5)
  - Disease recurrence [None]
  - Respiratory tract congestion [None]
  - Fatigue [None]
  - Cough [None]
  - Rebound effect [None]

NARRATIVE: CASE EVENT DATE: 20220511
